FAERS Safety Report 8888082 (Version 6)
Quarter: 2015Q2

REPORT INFORMATION
  Report Type: Spontaneous
  Country: US (occurrence: US)
  Receive Date: 20121106
  Receipt Date: 20150630
  Transmission Date: 20150821
  Serious: Yes (Hospitalization)
  Sender: FDA-Public Use
  Company Number: US-009507513-1211USA002029

PATIENT
  Sex: Male
  Weight: 79.82 kg

DRUGS (4)
  1. PROPECIA [Suspect]
     Active Substance: FINASTERIDE
     Indication: ALOPECIA
     Dosage: 1 MG, UNK
     Route: 048
     Dates: start: 2003, end: 20110315
  2. FINASTERIDE. [Suspect]
     Active Substance: FINASTERIDE
     Dosage: 5 MG, QD
     Dates: start: 20110202
  3. PROPECIA [Suspect]
     Active Substance: FINASTERIDE
     Indication: HAIR TRANSPLANT
     Dosage: 5 MG, UNK
     Route: 048
     Dates: start: 2003, end: 20110315
  4. FINASTERIDE. [Suspect]
     Active Substance: FINASTERIDE
     Dosage: 5 MG, UNK

REACTIONS (36)
  - Radiculopathy [Unknown]
  - Ear pain [Unknown]
  - Urinary retention [Unknown]
  - Drug ineffective [Unknown]
  - Cognitive disorder [Not Recovered/Not Resolved]
  - Hot flush [Unknown]
  - Epididymitis [Unknown]
  - Chest pain [Unknown]
  - Nocturia [Unknown]
  - Rotator cuff syndrome [Unknown]
  - Palpitations [Unknown]
  - Organic erectile dysfunction [Unknown]
  - Myalgia [Unknown]
  - Myositis [Unknown]
  - Testicular pain [Recovered/Resolved]
  - Insomnia [Unknown]
  - Epicondylitis [Unknown]
  - Malaise [Unknown]
  - Fall [Unknown]
  - Hypogonadism [Unknown]
  - Sexual dysfunction [Not Recovered/Not Resolved]
  - Dyspnoea [Unknown]
  - Malaise [Unknown]
  - Drug administration error [Unknown]
  - Carpal tunnel syndrome [Unknown]
  - Arthralgia [Recovered/Resolved]
  - Contusion [Unknown]
  - Genital lesion [Unknown]
  - Anxiety [Unknown]
  - Abdominal pain lower [Unknown]
  - Haemorrhoid operation [Unknown]
  - Neuropathy peripheral [Unknown]
  - Stress [Unknown]
  - Ligament sprain [Unknown]
  - Lower urinary tract symptoms [Unknown]
  - Fatigue [Unknown]

NARRATIVE: CASE EVENT DATE: 2004
